FAERS Safety Report 6434359-0 (Version None)
Quarter: 2009Q4

REPORT INFORMATION
  Report Type: 
  Country: None (occurrence: None)
  Receive Date: 20091110
  Receipt Date: 20081024
  Transmission Date: 20100525
  Serious: No
  Sender: FDA-Public Use
  Company Number: US-ASTRAZENECA-2009SE13976

PATIENT
  Age: 72 Year
  Sex: Male

DRUGS (4)
  1. PRILOSEC OTC [Suspect]
     Indication: CHEST DISCOMFORT
     Route: 048
     Dates: start: 20061024, end: 20081023
  2. PRILOSEC OTC [Suspect]
     Indication: FLATULENCE
     Route: 048
     Dates: start: 20061024, end: 20081023
  3. PRILOSEC OTC [Suspect]
  4. PRILOSEC OTC [Suspect]

REACTIONS (4)
  - CONDITION AGGRAVATED [None]
  - DIARRHOEA [None]
  - FLATULENCE [None]
  - INCORRECT DRUG ADMINISTRATION DURATION [None]
